FAERS Safety Report 6033249-5 (Version None)
Quarter: 2009Q1

REPORT INFORMATION
  Report Type: 
  Country: None (occurrence: None)
  Receive Date: 20090107
  Receipt Date: 20090102
  Transmission Date: 20090719
  Serious: Yes (Hospitalization)
  Sender: FDA-Public Use
  Company Number: JPI-P-005737

PATIENT
  Age: 34 Year
  Sex: Female
  Weight: 58.0604 kg

DRUGS (21)
  1. XYREM [Suspect]
     Indication: POOR QUALITY SLEEP
     Dosage: 4.5 GM (2.25 GM, 2 IN 1 D), ORAL, 7 GM (3.5 GM, 2 IN 1 D), ORAL
     Route: 048
     Dates: start: 20080101, end: 20080909
  2. XYREM [Suspect]
     Indication: RAPID EYE MOVEMENTS SLEEP ABNORMAL
     Dosage: 4.5 GM (2.25 GM, 2 IN 1 D), ORAL, 7 GM (3.5 GM, 2 IN 1 D), ORAL
     Route: 048
     Dates: start: 20080101, end: 20080909
  3. XYREM [Suspect]
     Indication: POOR QUALITY SLEEP
     Dosage: 4.5 GM (2.25 GM, 2 IN 1 D), ORAL, 7 GM (3.5 GM, 2 IN 1 D), ORAL
     Route: 048
     Dates: start: 20080910, end: 20081101
  4. XYREM [Suspect]
     Indication: RAPID EYE MOVEMENTS SLEEP ABNORMAL
     Dosage: 4.5 GM (2.25 GM, 2 IN 1 D), ORAL, 7 GM (3.5 GM, 2 IN 1 D), ORAL
     Route: 048
     Dates: start: 20080910, end: 20081101
  5. TRIAMTERENE AND HYDROCHLOROTHIAZIDE [Suspect]
     Indication: DIURETIC THERAPY
     Dates: end: 20080901
  6. TRIMETHOBENZAMIDE HYDROCHLORIDE [Concomitant]
  7. ONDANSETRON [Concomitant]
  8. HYDROXYZINE [Concomitant]
  9. LEVOTHYROXINE SODIUM [Concomitant]
  10. PANTOPRAZOLE SODIUM [Concomitant]
  11. LISDEXAMFETAMINE DIMESYLATE [Concomitant]
  12. CETIRIZINE HCL [Concomitant]
  13. LEVOCETIRIZINE [Concomitant]
  14. ROPINIROLE [Concomitant]
  15. POTASSIUM CHLORIDE [Concomitant]
  16. TIZANIDINE HCL [Concomitant]
  17. NARATRIPTAN [Concomitant]
  18. NAPROXEN [Concomitant]
  19. LEVONORGESTREL-RELEASING INTRAUTERINE DEVICE [Concomitant]
  20. ZOLPIDEM TARTRATE [Concomitant]
  21. FUROSEMIDE [Concomitant]

REACTIONS (7)
  - BLOOD POTASSIUM DECREASED [None]
  - CONDITION AGGRAVATED [None]
  - FOOD CRAVING [None]
  - OEDEMA PERIPHERAL [None]
  - SALT CRAVING [None]
  - VASCULITIS [None]
  - WEIGHT INCREASED [None]
